FAERS Safety Report 7453694 (Version 7)
Quarter: 2015Q4

REPORT INFORMATION
  Report Type: Report from Study
  Country: CA (occurrence: CA)
  Receive Date: 20100706
  Receipt Date: 20151221
  Transmission Date: 20160305
  Serious: Yes (Other)
  Sender: FDA-Public Use
  Company Number: PHHY2010CA05740

PATIENT
  Age: 77 Year
  Sex: Male

DRUGS (2)
  1. SANDOSTATIN LAR DEPOT [Suspect]
     Active Substance: OCTREOTIDE ACETATE
     Indication: ACRAL OVERGROWTH
     Dosage: 20 MG, EVERY 6 WEEKS
     Route: 030
     Dates: start: 19990301
  2. SANDOSTATIN LAR DEPOT [Suspect]
     Active Substance: OCTREOTIDE ACETATE
     Dosage: 20 MG, EVERY 8 WEEKS
     Route: 030

REACTIONS (9)
  - Ear neoplasm [Unknown]
  - Humerus fracture [Unknown]
  - Musculoskeletal pain [Recovering/Resolving]
  - Joint swelling [Unknown]
  - Headache [Unknown]
  - Rib fracture [Unknown]
  - Pain in extremity [Recovering/Resolving]
  - Oral infection [Unknown]
  - Otorrhoea [Unknown]

NARRATIVE: CASE EVENT DATE: 20151214
